FAERS Safety Report 16798863 (Version 1)
Quarter: 2019Q3

REPORT INFORMATION
  Report Type: Spontaneous
  Country: US (occurrence: US)
  Receive Date: 20190722
  Receipt Date: 20190722
  Transmission Date: 20191005
  Serious: Yes (Other)
  Sender: FDA-Public Use
  Company Number: None

PATIENT
  Age: 72 Year
  Sex: Male
  Weight: 75.3 kg

DRUGS (1)
  1. AMIODARONE 200MG @ DAY [Suspect]
     Active Substance: AMIODARONE
     Indication: ATRIAL FIBRILLATION
     Dates: start: 201809, end: 20190616

REACTIONS (4)
  - Nausea [None]
  - Hypoaesthesia [None]
  - Headache [None]
  - Blood thyroid stimulating hormone decreased [None]

NARRATIVE: CASE EVENT DATE: 20190124
